FAERS Safety Report 7752325-X (Version None)
Quarter: 2011Q3

REPORT INFORMATION
  Report Type: 
  Country: None (occurrence: None)
  Receive Date: 20110915
  Receipt Date: 20110901
  Transmission Date: 20111222
  Serious: Yes (Other)
  Sender: FDA-Public Use
  Company Number: CA-ELI_LILLY_AND_COMPANY-CA201109000162

PATIENT
  Sex: Female

DRUGS (8)
  1. ZYPREXA ZYDIS [Suspect]
     Indication: SCHIZOAFFECTIVE DISORDER
  2. ZYPREXA [Suspect]
     Indication: SCHIZOAFFECTIVE DISORDER
     Dosage: 10 MG, UNK
  3. ZYPREXA [Suspect]
     Dosage: 15 MG, UNK
  4. EFFEXOR [Concomitant]
  5. ASPIRIN [Concomitant]
  6. DIVALPROEX SODIUM [Concomitant]
  7. CELEXA [Concomitant]
  8. WELLBUTRIN [Concomitant]

REACTIONS (8)
  - TYPE 2 DIABETES MELLITUS [None]
  - ACANTHOSIS NIGRICANS [None]
  - NEPHROPATHY [None]
  - WEIGHT INCREASED [None]
  - BLOOD CHOLESTEROL INCREASED [None]
  - BLOOD PRESSURE INCREASED [None]
  - OVERDOSE [None]
  - MICROALBUMINURIA [None]
